FAERS Safety Report 8449904-3 (Version None)
Quarter: 2012Q2

REPORT INFORMATION
  Report Type: 
  Country: None (occurrence: None)
  Receive Date: 20120620
  Receipt Date: 20120611
  Transmission Date: 20120825
  Serious: Yes (Hospitalization, Other)
  Sender: FDA-Public Use
  Company Number: PHHY2012CA051394

PATIENT
  Sex: Male

DRUGS (1)
  1. ZOMETA [Suspect]
     Indication: LUNG NEOPLASM MALIGNANT
     Dosage: 4 MG, EVERY 4 WEEKS
     Route: 042
     Dates: start: 20120608

REACTIONS (8)
  - ACIDOSIS [None]
  - AGEUSIA [None]
  - DYSPNOEA [None]
  - BLOOD GLUCOSE ABNORMAL [None]
  - DEHYDRATION [None]
  - SOMNOLENCE [None]
  - DIZZINESS [None]
  - DECREASED APPETITE [None]
